FAERS Safety Report 6548016-3 (Version None)
Quarter: 2010Q1

REPORT INFORMATION
  Report Type: 
  Country: None (occurrence: None)
  Receive Date: 20100124
  Receipt Date: 20091202
  Transmission Date: 20100710
  Serious: No
  Sender: FDA-Public Use
  Company Number: US-ALEXION-A200901035

PATIENT

DRUGS (1)
  1. SOLIRIS [Suspect]
     Indication: DRUG USE FOR UNKNOWN INDICATION
     Dosage: MAINTENANCE DOSE

REACTIONS (1)
  - VIRAL INFECTION [None]
